FAERS Safety Report 4353165-4 (Version None)
Quarter: 2004Q2

REPORT INFORMATION
  Report Type: 
  Country: None (occurrence: None)
  Receive Date: 20040504
  Receipt Date: 20040504
  Transmission Date: 20050107
  Serious: No
  Sender: FDA-Public Use
  Company Number: None

PATIENT
  Age: 54 Year
  Sex: Male
  Weight: 100.2 kg

DRUGS (1)
  1. TAZAROTENE [Suspect]

REACTIONS (1)
  - RASH [None]
